FAERS Safety Report 9402599 (Version 1)
Quarter: 2013Q3

REPORT INFORMATION
  Report Type: Spontaneous
  Country: BR (occurrence: BR)
  Receive Date: 20130716
  Receipt Date: 20130716
  Transmission Date: 20140515
  Serious: Yes (Hospitalization)
  Sender: FDA-Public Use
  Company Number: BR-ASTRAZENECA-2013SE51578

PATIENT
  Age: 83 Year
  Sex: Male
  Weight: 64 kg

DRUGS (5)
  1. CRESTOR [Suspect]
     Indication: BLOOD CHOLESTEROL ABNORMAL
     Dosage: DAILY
     Route: 048
     Dates: start: 2010
  2. RETEMIC [Concomitant]
     Indication: RECTAL LESION
  3. RETEMIC [Concomitant]
     Indication: RENAL LESION EXCISION
  4. UNSPECIFIED MEDICATION [Concomitant]
     Indication: RECTAL LESION
  5. UNSPECIFIED MEDICATION [Concomitant]
     Indication: RENAL LESION EXCISION

REACTIONS (3)
  - Arterial occlusive disease [Recovered/Resolved]
  - Coronary artery occlusion [Recovered/Resolved]
  - Tinnitus [Unknown]
